FAERS Safety Report 9528461 (Version 1)
Quarter: 2013Q1

REPORT INFORMATION
  Report Type: Spontaneous
  Country: US (occurrence: None)
  Receive Date: 20130314
  Receipt Date: 20130314
  Transmission Date: 20140127
  Serious: Yes (Other)
  Sender: FDA-Public Use
  Company Number: 1208USA012249

PATIENT
  Sex: Male

DRUGS (3)
  1. PEGINTRON (PEGINTERFERON ALFA-2B)POWDER FOR INJECTION [Suspect]
     Indication: HEPATITIS C
     Dates: start: 20120820
  2. REBETOL (RIBAVIRIN)CAPSULE [Suspect]
     Indication: HEPATITIS C
     Route: 048
     Dates: start: 20120820
  3. VICTRELIS (BOCEPREVIR)CAPSULE [Suspect]
     Route: 048
     Dates: start: 20120917

REACTIONS (3)
  - Haemorrhage [None]
  - Dry mouth [None]
  - Mouth ulceration [None]
